FAERS Safety Report 8619802-0 (Version None)
Quarter: 2012Q3

REPORT INFORMATION
  Report Type: 
  Country: None (occurrence: None)
  Receive Date: 20120824
  Receipt Date: 20120815
  Transmission Date: 20120928
  Serious: Yes (Disabling, Other)
  Sender: FDA-Public Use
  Company Number: GB-PERRIGO-12GB007162

PATIENT
  Sex: Female

DRUGS (5)
  1. NAPROXEN [Suspect]
     Indication: INFLAMMATION
     Dosage: 1 DF, UNK
     Route: 048
     Dates: start: 20120701, end: 20120714
  2. NAPROXEN [Suspect]
     Indication: PAIN
  3. VOLTAREN [Suspect]
     Indication: PAIN
  4. OMEPRAZOLE [Concomitant]
     Indication: GASTRITIS
     Dosage: UNK
     Route: 065
  5. VOLTAREN [Suspect]
     Indication: INFLAMMATION
     Dosage: BID
     Route: 061
     Dates: start: 20120714, end: 20120717

REACTIONS (12)
  - FEELING HOT [None]
  - DRY MOUTH [None]
  - ABDOMINAL PAIN UPPER [None]
  - GAIT DISTURBANCE [None]
  - DIARRHOEA [None]
  - INSOMNIA [None]
  - MOVEMENT DISORDER [None]
  - SALMONELLOSIS [None]
  - RASH [None]
  - PAIN [None]
  - SWELLING [None]
  - BLISTER [None]
